FAERS Safety Report 26125738 (Version 1)
Quarter: 2025Q4

REPORT INFORMATION
  Report Type: Spontaneous
  Country: US (occurrence: US)
  Receive Date: 20251205
  Receipt Date: 20251205
  Transmission Date: 20260117
  Serious: Yes (Other)
  Sender: Otter
  Company Number: US-OTTER-US-2025AST000269

PATIENT
  Age: 83 Year
  Sex: Male

DRUGS (1)
  1. METHOTREXATE [Suspect]
     Active Substance: METHOTREXATE
     Indication: Product used for unknown indication
     Dosage: UNK UNK, UNK
     Route: 065

REACTIONS (7)
  - Neoplasm malignant [Unknown]
  - Lymphoma [Unknown]
  - Pleural effusion [Unknown]
  - Atelectasis [Unknown]
  - Dyspnoea exertional [Unknown]
  - Cough [Unknown]
  - Toxicity to various agents [Unknown]

NARRATIVE: CASE EVENT DATE: 20230501
